FAERS Safety Report 21493147 (Version 1)
Quarter: 2022Q4

REPORT INFORMATION
  Report Type: Other
  Country: CN (occurrence: None)
  Receive Date: 20221021
  Receipt Date: 20221021
  Transmission Date: 20230112
  Serious: Yes (Death)
  Sender: FDA-Public Use
  Company Number: CN-ROCHE-3204603

PATIENT

DRUGS (4)
  1. BEVACIZUMAB [Suspect]
     Active Substance: BEVACIZUMAB
     Indication: Bile duct cancer
     Dosage: 2H D1
     Route: 042
  2. OXALIPLATIN [Suspect]
     Active Substance: OXALIPLATIN
     Indication: Bile duct cancer
     Dosage: 2H, DAYS 1-3
     Route: 065
  3. FLUOROURACIL [Suspect]
     Active Substance: FLUOROURACIL
     Indication: Bile duct cancer
     Dosage: 22H, DAYS 1-3
     Route: 065
  4. TORIPALIMAB [Suspect]
     Active Substance: TORIPALIMAB
     Indication: Bile duct cancer
     Dosage: DAY 1
     Route: 042

REACTIONS (1)
  - Hepatic function abnormal [Fatal]
